FAERS Safety Report 5079948-3 (Version None)
Quarter: 2006Q3

REPORT INFORMATION
  Report Type: 
  Country: None (occurrence: None)
  Receive Date: 20060815
  Receipt Date: 20060807
  Transmission Date: 20061208
  Serious: Yes (Other)
  Sender: FDA-Public Use
  Company Number: US-JNJFOC-20060802140

PATIENT
  Sex: Female

DRUGS (1)
  1. REGRANEX [Suspect]
     Indication: WOUND

REACTIONS (5)
  - ANAEMIA [None]
  - ASTHENIA [None]
  - BONE PAIN [None]
  - MUSCULOSKELETAL STIFFNESS [None]
  - MYALGIA [None]
